FAERS Safety Report 4585306-8 (Version None)
Quarter: 2005Q1

REPORT INFORMATION
  Report Type: 
  Country: None (occurrence: None)
  Receive Date: 20050214
  Receipt Date: 20050131
  Transmission Date: 20050727
  Serious: Yes (Hospitalization, Disabling, Other)
  Sender: FDA-Public Use
  Company Number: 2005005711

PATIENT
  Sex: Female

DRUGS (3)
  1. CELEBREX [Suspect]
     Indication: ARTHRITIS
     Dosage: 400 MG (400 MG, 1 IN 1D), ORAL
     Route: 048
     Dates: end: 20030519
  2. BEXTRA [Suspect]
     Indication: JOINT SPRAIN
     Dates: start: 20030101
  3. AMLODIPINE BESYLATE [Concomitant]

REACTIONS (6)
  - CARDIAC FAILURE CONGESTIVE [None]
  - FALL [None]
  - GENERAL PHYSICAL HEALTH DETERIORATION [None]
  - IMPAIRED WORK ABILITY [None]
  - JOINT SPRAIN [None]
  - PULMONARY EMBOLISM [None]
